FAERS Safety Report 4398708-X (Version None)
Quarter: 2004Q3

REPORT INFORMATION
  Report Type: 
  Country: None (occurrence: None)
  Receive Date: 20040712
  Receipt Date: 20040617
  Transmission Date: 20050211
  Serious: Yes (Hospitalization)
  Sender: FDA-Public Use
  Company Number: GBS040615107

PATIENT
  Age: 59 Year
  Sex: Female

DRUGS (5)
  1. FLOXETINE-ORAL (FLUOXETINE) (FLUOXETINE HYDROCHLOR [Suspect]
     Indication: DEPRESSION
     Dosage: 120 MG
     Dates: start: 20040601, end: 20040607
  2. DICLOFENAC [Concomitant]
  3. NICOTINE [Concomitant]
  4. DIAZEPAM [Concomitant]
  5. CO-PROXAMOL [Concomitant]

REACTIONS (4)
  - GASTROINTESTINAL HAEMORRHAGE [None]
  - HAEMOGLOBIN DECREASED [None]
  - LIVER FUNCTION TEST ABNORMAL [None]
  - TACHYCARDIA [None]
